FAERS Safety Report 4655192-6 (Version None)
Quarter: 2005Q2

REPORT INFORMATION
  Report Type: 
  Country: None (occurrence: None)
  Receive Date: 20050506
  Receipt Date: 20050504
  Transmission Date: 20051028
  Serious: Yes (Hospitalization)
  Sender: FDA-Public Use
  Company Number: US-GLAXOSMITHKLINE-A0557254A

PATIENT
  Age: 67 Year
  Sex: Female

DRUGS (16)
  1. ADVAIR DISKUS 100/50 [Suspect]
     Indication: CHRONIC OBSTRUCTIVE PULMONARY DISEASE
     Dosage: 1PUFF TWICE PER DAY
     Route: 055
     Dates: end: 20050503
  2. IMODIUM [Concomitant]
  3. BENADRYL [Concomitant]
  4. ANTIVERT [Concomitant]
  5. PRINIVIL [Concomitant]
  6. MIACALCIN [Concomitant]
  7. PREMARIN [Concomitant]
  8. PATANOL [Concomitant]
  9. ULTRAM [Concomitant]
  10. ADVIL LIQUID [Concomitant]
  11. TYLENOL (CAPLET) [Concomitant]
  12. XANAX SR [Concomitant]
  13. ATROVENT [Concomitant]
  14. ALBUTEROL [Concomitant]
  15. CHLORASEPTIC THROAT SPRAY [Concomitant]
  16. VICKS VAPOR RUB [Concomitant]

REACTIONS (6)
  - BRONCHITIS [None]
  - BRONCHITIS ACUTE [None]
  - CHRONIC SINUSITIS [None]
  - PHARYNGITIS [None]
  - THROAT IRRITATION [None]
  - VERTIGO [None]
